FAERS Safety Report 8440604-2 (Version None)
Quarter: 2012Q2

REPORT INFORMATION
  Report Type: 
  Country: None (occurrence: None)
  Receive Date: 20120615
  Receipt Date: 20120605
  Transmission Date: 20120825
  Serious: Yes (Other)
  Sender: FDA-Public Use
  Company Number: JP-UCBSA-059041

PATIENT

DRUGS (1)
  1. KEPPRA [Suspect]
     Dosage: STRENGTH: 500MG
     Route: 048

REACTIONS (1)
  - RHABDOMYOLYSIS [None]
